FAERS Safety Report 11233680 (Version 1)
Quarter: 2015Q3

REPORT INFORMATION
  Report Type: Spontaneous
  Country: TH (occurrence: TH)
  Receive Date: 20150702
  Receipt Date: 20150702
  Transmission Date: 20151125
  Serious: Yes (Hospitalization)
  Sender: FDA-Public Use
  Company Number: TH-MALLINCKRODT-T201503176

PATIENT
  Age: 46 Year
  Sex: Male

DRUGS (1)
  1. OPTIRAY [Suspect]
     Active Substance: IOVERSOL
     Indication: COMPUTERISED TOMOGRAM ABDOMEN
     Dosage: 100 ML, SINGLE, INJECTED AT A RATE OF 2.5 TO 3.0 ML/SEC VIA INJECTOR
     Route: 065
     Dates: start: 20150521, end: 20150521

REACTIONS (5)
  - Salivary hypersecretion [Recovered/Resolved]
  - Cough [Recovered/Resolved]
  - Muscle rigidity [Recovered/Resolved]
  - Hypotension [Recovered/Resolved]
  - Hyperhidrosis [Recovered/Resolved]

NARRATIVE: CASE EVENT DATE: 20150521
